FAERS Safety Report 10201582 (Version 2)
Quarter: 2014Q2

REPORT INFORMATION
  Report Type: Report from Study
  Country: DE (occurrence: DE)
  Receive Date: 20140528
  Receipt Date: 20140605
  Transmission Date: 20141212
  Serious: Yes (Other)
  Sender: FDA-Public Use
  Company Number: DE-INCYTE CORPORATION-2014IN001383

PATIENT
  Sex: Female
  Weight: 55 kg

DRUGS (8)
  1. INCB018424 [Suspect]
     Indication: MYELOFIBROSIS
     Dosage: 15 MG, BID (2 DF PER DAY)
     Route: 048
     Dates: start: 20140404, end: 20140416
  2. INCB018424 [Suspect]
     Indication: POLYCYTHAEMIA VERA
     Dosage: 15 MG, BID (2 DF PER DAY)
     Route: 065
     Dates: start: 20140425, end: 20140508
  3. INCB018424 [Suspect]
     Dosage: 15 MG, QD (1 DF PER DAY)
     Route: 048
     Dates: start: 20140509
  4. CARVEDILOL [Concomitant]
     Indication: CARDIAC FAILURE
     Dosage: 12.5 MG, PER DAY
     Dates: start: 20130704
  5. FUROBETA [Concomitant]
     Indication: HYPERTENSION
     Dosage: 80 MG, PER DAY
     Dates: start: 20131213
  6. CETIRIZINE [Concomitant]
     Indication: PRURITUS
     Dosage: 10 MG, PER DAY
     Dates: start: 20130412
  7. OMEPRAZOLE [Concomitant]
     Indication: DUODENAL ULCER
     Dosage: 10 MG, PER DAY
     Dates: start: 20130704, end: 20140417
  8. PANTOZOL [Concomitant]
     Indication: DUODENAL ULCER
     Dosage: 40 MG, PER DAY
     Dates: start: 20140424

REACTIONS (2)
  - Gamma-glutamyltransferase increased [Not Recovered/Not Resolved]
  - Blood lactate dehydrogenase increased [Not Recovered/Not Resolved]
